FAERS Safety Report 7204522-X (Version None)
Quarter: 2010Q4

REPORT INFORMATION
  Report Type: 
  Country: None (occurrence: None)
  Receive Date: 20101230
  Receipt Date: 20101216
  Transmission Date: 20110411
  Serious: Yes (Hospitalization)
  Sender: FDA-Public Use
  Company Number: PHHY2010MT85410

PATIENT
  Age: 76 Year
  Sex: Male

DRUGS (1)
  1. RASILEZ [Suspect]
     Indication: HYPERTENSION
     Dosage: UNK
     Dates: start: 20101101

REACTIONS (2)
  - CONDITION AGGRAVATED [None]
  - URINARY TRACT INFECTION [None]
